FAERS Safety Report 11759395 (Version 1)
Quarter: 2015Q4

REPORT INFORMATION
  Report Type: Spontaneous
  Country: US (occurrence: US)
  Receive Date: 20151120
  Receipt Date: 20151120
  Transmission Date: 20160304
  Serious: No
  Sender: FDA-Public Use
  Company Number: US-JNJFOC-20151003544

PATIENT
  Age: 56 Year
  Sex: Female
  Weight: 61.24 kg

DRUGS (5)
  1. CALCIUM WITH VITAMIN D [Concomitant]
     Active Substance: CALCIUM\VITAMIN D
     Indication: MENOPAUSAL SYMPTOMS PROPHYLAXIS
     Route: 065
  2. MENS ROGAINE EXTRA STRENGTH [Suspect]
     Active Substance: MINOXIDIL
     Route: 061
  3. BIOTIN [Concomitant]
     Active Substance: BIOTIN
     Indication: NUTRITIONAL SUPPLEMENTATION
     Route: 065
  4. MENS ROGAINE EXTRA STRENGTH [Suspect]
     Active Substance: MINOXIDIL
     Indication: ALOPECIA
     Dosage: ONE CAPFUL, EVERY OTHER DAY
     Route: 061
  5. LACTOSE [Concomitant]
     Active Substance: LACTOSE
     Indication: LACTOSE INTOLERANCE
     Route: 065

REACTIONS (8)
  - Incorrect dose administered [Unknown]
  - Inappropriate schedule of drug administration [Unknown]
  - Skin irritation [Recovering/Resolving]
  - Drug ineffective [Unknown]
  - Skin exfoliation [Recovering/Resolving]
  - Wrong patient received medication [Unknown]
  - Iron deficiency [Recovered/Resolved]
  - Erythema [Unknown]
